FAERS Safety Report 8812650 (Version 2)
Quarter: 2012Q4

REPORT INFORMATION
  Report Type: 
  Country: DE (occurrence: DE)
  Receive Date: 20120927
  Receipt Date: 20121003
  Transmission Date: 20130627
  Serious: Yes (Other)
  Sender: FDA-Public Use
  Company Number: PHHY2012DE081775

PATIENT
  Age: 23 Year
  Sex: Male

DRUGS (2)
  1. HEPARIN [Suspect]
     Indication: ANTICOAGULANT THERAPY
  2. ARGATROBAN [Suspect]
     Indication: ANTICOAGULANT THERAPY
     Dosage: 1.08 ug/kg/min

REACTIONS (7)
  - Heparin-induced thrombocytopenia [Unknown]
  - Procedural haemorrhage [Recovered/Resolved]
  - Drug level increased [Recovered/Resolved]
  - Aspartate aminotransferase increased [None]
  - Alanine aminotransferase increased [None]
  - Pseudocholinesterase deficiency [None]
  - Blood bilirubin increased [None]
